FAERS Safety Report 4514265-9 (Version None)
Quarter: 2004Q4

REPORT INFORMATION
  Report Type: 
  Country: None (occurrence: None)
  Receive Date: 20041124
  Receipt Date: 20041107
  Transmission Date: 20050328
  Serious: Yes (Other)
  Sender: FDA-Public Use
  Company Number: GBS041115908

PATIENT
  Age: 44 Year
  Sex: Female

DRUGS (1)
  1. XIGRIS [Suspect]
     Dates: start: 20041105

REACTIONS (1)
  - PLATELET COUNT DECREASED [None]
